FAERS Safety Report 19377477 (Version 2)
Quarter: 2021Q3

REPORT INFORMATION
  Report Type: Spontaneous
  Country: US (occurrence: US)
  Receive Date: 20210605
  Receipt Date: 20210705
  Transmission Date: 20211014
  Serious: Yes (Life-Threatening, Disabling, Other)
  Sender: FDA-Public Use
  Company Number: US-ORGANON-O2106USA000404

PATIENT
  Sex: Male

DRUGS (1)
  1. PROSCAR [Suspect]
     Active Substance: FINASTERIDE
     Dosage: UNK
     Route: 048
     Dates: start: 201706, end: 201810

REACTIONS (17)
  - Sepsis [Unknown]
  - Impaired quality of life [Not Recovered/Not Resolved]
  - Intra-abdominal haematoma [Unknown]
  - Hyperhidrosis [Unknown]
  - Prostate cancer [Not Recovered/Not Resolved]
  - Mental disorder [Unknown]
  - Hernia [Unknown]
  - Proctalgia [Not Recovered/Not Resolved]
  - Hot flush [Unknown]
  - Pain [Unknown]
  - Fear [Unknown]
  - Skin burning sensation [Unknown]
  - Enuresis [Unknown]
  - Urinary incontinence [Unknown]
  - Emotional distress [Unknown]
  - Bladder stenosis [Unknown]
  - Erectile dysfunction [Unknown]
